FAERS Safety Report 11179837 (Version 5)
Quarter: 2016Q2

REPORT INFORMATION
  Report Type: Report from Study
  Country: BR (occurrence: BR)
  Receive Date: 20150611
  Receipt Date: 20160519
  Transmission Date: 20160815
  Serious: Yes (Other)
  Sender: FDA-Public Use
  Company Number: PHHY2015BR031425

PATIENT
  Sex: Female
  Weight: 64 kg

DRUGS (4)
  1. SPIRIVA [Concomitant]
     Active Substance: TIOTROPIUM BROMIDE MONOHYDRATE
     Indication: EMPHYSEMA
     Dosage: 2.5 UG, QN (BEGINING OF FEB)
     Route: 048
  2. LOSARTAN. [Concomitant]
     Active Substance: LOSARTAN
     Indication: HYPERTENSION
     Dosage: 1 DF, QD
     Route: 048
  3. ONBREZ BREEZHALER [Suspect]
     Active Substance: INDACATEROL
     Dosage: 300 UG, UNK
     Route: 055
  4. ONBREZ BREEZHALER [Suspect]
     Active Substance: INDACATEROL
     Indication: EMPHYSEMA
     Dosage: 30 CAPSULES (STARTED USING ONE YERA AGO,ONCE DAILY IN THE MORNING)
     Route: 055
     Dates: start: 201410, end: 201412

REACTIONS (13)
  - Aphthous ulcer [Recovered/Resolved]
  - Oral discomfort [Unknown]
  - Tremor [Not Recovered/Not Resolved]
  - Stomatitis [Unknown]
  - Dyspnoea [Recovered/Resolved]
  - Oral pain [Recovered/Resolved]
  - Wrong technique in product usage process [Unknown]
  - Asthmatic crisis [Recovered/Resolved]
  - Oral herpes [Recovered/Resolved]
  - Secretion discharge [Recovered/Resolved]
  - Oedema mucosal [Not Recovered/Not Resolved]
  - Oral disorder [Recovered/Resolved]
  - Oral mucosal erythema [Recovered/Resolved]
